FAERS Safety Report 11501245 (Version 1)
Quarter: 2015Q3

REPORT INFORMATION
  Report Type: Spontaneous
  Country: US (occurrence: US)
  Receive Date: 20150903
  Receipt Date: 20150903
  Transmission Date: 20151125
  Serious: No
  Sender: FDA-Public Use
  Company Number: US-ELI_LILLY_AND_COMPANY-US200908001028

PATIENT
  Sex: Male

DRUGS (2)
  1. BYETTA [Concomitant]
     Active Substance: EXENATIDE
  2. HUMALOG [Suspect]
     Active Substance: INSULIN LISPRO

REACTIONS (5)
  - Malaise [Recovered/Resolved]
  - Pollakiuria [Not Recovered/Not Resolved]
  - Vomiting projectile [Recovered/Resolved]
  - Urinary incontinence [Not Recovered/Not Resolved]
  - Abdominal pain upper [Not Recovered/Not Resolved]
